FAERS Safety Report 7010716-9 (Version None)
Quarter: 2010Q3

REPORT INFORMATION
  Report Type: 
  Country: None (occurrence: None)
  Receive Date: 20100923
  Receipt Date: 20100914
  Transmission Date: 20110219
  Serious: Yes (Other)
  Sender: FDA-Public Use
  Company Number: US-JNJCH-2010021436

PATIENT
  Age: 5 Year
  Sex: Female
  Weight: 19 kg

DRUGS (2)
  1. BENADRYL [Suspect]
     Indication: VARICELLA
     Dosage: TEXT:1 MG/KG TWO TO THREE TIMES DAILY
     Route: 048
  2. CALADRYL [Suspect]
     Indication: VARICELLA
     Dosage: TEXT:FOUR TIMES
     Route: 061

REACTIONS (4)
  - DRUG TOXICITY [None]
  - OVERDOSE [None]
  - TOXIC ENCEPHALOPATHY [None]
  - WRONG DRUG ADMINISTERED [None]
